FAERS Safety Report 16867000 (Version 1)
Quarter: 2019Q3

REPORT INFORMATION
  Report Type: Report from Study
  Country: ZA (occurrence: ZA)
  Receive Date: 20190930
  Receipt Date: 20190930
  Transmission Date: 20191005
  Serious: Yes (Death, Hospitalization, Other)
  Sender: FDA-Public Use
  Company Number: ZA-B.I. PHARMACEUTICALS,INC./RIDGEFIELD-2019-BI-104774

PATIENT
  Sex: Female

DRUGS (1)
  1. VIRAMUNE [Suspect]
     Active Substance: NEVIRAPINE
     Indication: HIV INFECTION
     Route: 065

REACTIONS (8)
  - Toxic epidermal necrolysis [Unknown]
  - Blood urea increased [Unknown]
  - Death [Fatal]
  - Staphylococcal sepsis [Unknown]
  - Hypernatraemia [Unknown]
  - Tachycardia [Unknown]
  - Acidosis [Unknown]
  - Stillbirth [Unknown]
